FAERS Safety Report 18334996 (Version 5)
Quarter: 2023Q1

REPORT INFORMATION
  Report Type: Report from Study
  Country: US (occurrence: US)
  Receive Date: 20201001
  Receipt Date: 20230320
  Transmission Date: 20230418
  Serious: Yes (Hospitalization)
  Sender: FDA-Public Use
  Company Number: US-PFIZER INC-2020373981

PATIENT
  Age: 35 Year
  Sex: Female
  Weight: 66.213 kg

DRUGS (6)
  1. PLACEBO [Suspect]
     Active Substance: UNSPECIFIED INGREDIENT
     Indication: Immunisation
     Dosage: DOSE 1, SINGLE
     Route: 030
     Dates: start: 20200831, end: 20200831
  2. MEDROL [Suspect]
     Active Substance: METHYLPREDNISOLONE
     Indication: Muscle spasms
     Dosage: 4 MG, DAILY, DOSE PACK
     Route: 048
     Dates: start: 20200919, end: 20200924
  3. CYCLOBENZAPRINE [Suspect]
     Active Substance: CYCLOBENZAPRINE
     Indication: Muscle spasms
     Dosage: 10 MG, DAILY
     Route: 048
     Dates: start: 20200919, end: 20200924
  4. LEVOTHYROXINE [Concomitant]
     Active Substance: LEVOTHYROXINE
     Indication: Hypothyroidism
     Dosage: UNK
     Dates: start: 2017
  5. BUPROPION [Concomitant]
     Active Substance: BUPROPION
     Indication: Depression
     Dosage: UNK
     Dates: start: 2016
  6. CLARITIN [Concomitant]
     Active Substance: LORATADINE
     Indication: Seasonal allergy
     Dosage: UNK
     Dates: start: 2018

REACTIONS (1)
  - Paraesthesia [Recovered/Resolved]

NARRATIVE: CASE EVENT DATE: 20200921
